FAERS Safety Report 18713284 (Version 1)
Quarter: 2021Q1

REPORT INFORMATION
  Report Type: Spontaneous
  Country: ES (occurrence: ES)
  Receive Date: 20210107
  Receipt Date: 20210107
  Transmission Date: 20210419
  Serious: No
  Sender: FDA-Public Use
  Company Number: ES-LUPIN PHARMACEUTICALS INC.-2020-11441

PATIENT
  Age: 55 Year
  Sex: Male

DRUGS (4)
  1. DECITABINE. [Suspect]
     Active Substance: DECITABINE
     Indication: MITOCHONDRIAL ENZYME DEFICIENCY
  2. DEOXYTHYMIDINE [Suspect]
     Active Substance: THYMIDINE 5^-MONOPHOSPHATE
     Indication: MITOCHONDRIAL MYOPATHY
     Dosage: UNK UNK, QD
     Route: 048
  3. DEOXYTHYMIDINE [Suspect]
     Active Substance: THYMIDINE 5^-MONOPHOSPHATE
     Indication: MITOCHONDRIAL ENZYME DEFICIENCY
  4. DECITABINE. [Suspect]
     Active Substance: DECITABINE
     Indication: MITOCHONDRIAL MYOPATHY
     Dosage: UNK UNK, QD
     Route: 048

REACTIONS (1)
  - Off label use [Unknown]
